FAERS Safety Report 7784321-0 (Version None)
Quarter: 2011Q3

REPORT INFORMATION
  Report Type: 
  Country: None (occurrence: None)
  Receive Date: 20110928
  Receipt Date: 20110920
  Transmission Date: 20111222
  Serious: Yes (Other)
  Sender: FDA-Public Use
  Company Number: PHEH2011US03105

PATIENT
  Sex: Female

DRUGS (1)
  1. AREDIA [Suspect]
     Indication: METASTASES TO BONE
     Dosage: 90 MG, QMO
     Route: 042
     Dates: start: 19990422, end: 20041101

REACTIONS (14)
  - DYSURIA [None]
  - DERMAL CYST [None]
  - HEADACHE [None]
  - ABDOMINAL PAIN [None]
  - PROTHROMBIN TIME PROLONGED [None]
  - BLOOD UREA INCREASED [None]
  - FOOT FRACTURE [None]
  - VAGINAL DISCHARGE [None]
  - MUSCULOSKELETAL PAIN [None]
  - GASTROOESOPHAGEAL REFLUX DISEASE [None]
  - FALL [None]
  - ARTERIOSCLEROSIS [None]
  - LYMPH NODE CALCIFICATION [None]
  - NECK PAIN [None]
